FAERS Safety Report 7818199-3 (Version None)
Quarter: 2011Q4

REPORT INFORMATION
  Report Type: 
  Country: None (occurrence: None)
  Receive Date: 20111017
  Receipt Date: 20111012
  Transmission Date: 20120403
  Serious: Yes (Death, Other)
  Sender: FDA-Public Use
  Company Number: PHHY2011JP90552

PATIENT

DRUGS (2)
  1. CYCLOSPORINE [Suspect]
     Indication: STEM CELL TRANSPLANT
     Dosage: UNK UKN, UNK
  2. METHYLPREDNISOLONE [Suspect]
     Indication: STEM CELL TRANSPLANT
     Dosage: UNK UKN, UNK

REACTIONS (6)
  - HAEMATURIA [None]
  - ADENOVIRUS INFECTION [None]
  - BLADDER IRRITATION [None]
  - CYTOMEGALOVIRUS INFECTION [None]
  - VIRAL HAEMORRHAGIC CYSTITIS [None]
  - GRAFT VERSUS HOST DISEASE [None]
